FAERS Safety Report 6255868-3 (Version None)
Quarter: 2009Q3

REPORT INFORMATION
  Report Type: 
  Country: None (occurrence: None)
  Receive Date: 20090703
  Receipt Date: 20090623
  Transmission Date: 20100115
  Serious: Yes (Other)
  Sender: FDA-Public Use
  Company Number: US-ROCHE-635974

PATIENT
  Sex: Female
  Weight: 54.4 kg

DRUGS (5)
  1. ACCUTANE [Suspect]
     Indication: ACNE
     Route: 048
     Dates: start: 20090313
  2. SOTRET [Suspect]
     Indication: DRUG USE FOR UNKNOWN INDICATION
     Route: 048
     Dates: start: 20090316
  3. SOTRET [Suspect]
     Dosage: DOSE INCREASED
     Route: 048
  4. SOTRET [Suspect]
     Dosage: DOSE DECREASED
     Route: 048
     Dates: end: 20090520
  5. PAXIL [Concomitant]
     Indication: ANXIETY
     Route: 048

REACTIONS (1)
  - ABORTION INDUCED [None]
